FAERS Safety Report 4597570-X (Version None)
Quarter: 2005Q1

REPORT INFORMATION
  Report Type: 
  Country: None (occurrence: None)
  Receive Date: 20050228
  Receipt Date: 20050228
  Transmission Date: 20050727
  Serious: No
  Sender: FDA-Public Use
  Company Number: None

PATIENT
  Age: 64 Year
  Sex: Male
  Weight: 97.5234 kg

DRUGS (1)
  1. BEXTRA [Suspect]
     Indication: PAIN
     Dosage: ONE THEN TWO DAILY ORAL
     Route: 048
     Dates: start: 20030705, end: 20030709

REACTIONS (9)
  - DRUG INEFFECTIVE [None]
  - DRY THROAT [None]
  - EYE SWELLING [None]
  - FEELING HOT [None]
  - INSOMNIA [None]
  - PRURITUS [None]
  - RASH [None]
  - SWELLING [None]
  - URTICARIA [None]
